FAERS Safety Report 12641438 (Version 1)
Quarter: 2016Q3

REPORT INFORMATION
  Report Type: Spontaneous
  Country: US (occurrence: US)
  Receive Date: 20160810
  Receipt Date: 20160810
  Transmission Date: 20161109
  Serious: No
  Sender: FDA-Public Use
  Company Number: US-WATSON-2016-05904

PATIENT
  Age: 70 Year
  Sex: Female
  Weight: 35 kg

DRUGS (5)
  1. ROBITUSSIN COUGH+CHEST CONGESTION DM [Concomitant]
     Indication: COUGH
     Dosage: UNK, DAILY
     Route: 048
     Dates: start: 20160303
  2. PROPRANOLOL [Concomitant]
     Active Substance: PROPRANOLOL\PROPRANOLOL HYDROCHLORIDE
     Indication: BLOOD PRESSURE MEASUREMENT
     Dosage: 10 MG, DAILY
     Route: 065
  3. DICYCLOMINE                        /00068602/ [Concomitant]
     Indication: INTESTINAL RESECTION
     Dosage: 20 MG, BID
     Route: 065
  4. CLEOCIN HYDROCHLORIDE [Suspect]
     Active Substance: CLINDAMYCIN HYDROCHLORIDE
     Indication: PRODUCT USED FOR UNKNOWN INDICATION
     Dosage: UNK, UNKNOWN
     Route: 048
  5. LORAZEPAM. [Concomitant]
     Active Substance: LORAZEPAM
     Indication: PRODUCT USED FOR UNKNOWN INDICATION
     Dosage: 0.5 MG, TID
     Route: 065

REACTIONS (1)
  - Gastrooesophageal reflux disease [Recovered/Resolved]

NARRATIVE: CASE EVENT DATE: 20160302
